FAERS Safety Report 17666878 (Version 1)
Quarter: 2020Q2

REPORT INFORMATION
  Report Type: Spontaneous
  Country: US (occurrence: US)
  Receive Date: 20200414
  Receipt Date: 20200414
  Transmission Date: 20200713
  Serious: No
  Sender: FDA-Public Use
  Company Number: US-JAZZ-2019-US-017935

PATIENT
  Age: 64 Year
  Sex: Male

DRUGS (5)
  1. MODAFINIL. [Suspect]
     Active Substance: MODAFINIL
     Dosage: HALF USUAL DOSE WITH FIRST SUNOSI DOSE
  2. SUNOSI [Suspect]
     Active Substance: SOLRIAMFETOL
     Indication: SOMNOLENCE
     Dosage: 75 MG, PRN
     Route: 048
     Dates: start: 2019
  3. MODAFINIL. [Suspect]
     Active Substance: MODAFINIL
     Dosage: HALF USUAL DOSE WITH SUNOSI IN THE MORNING
  4. SUNOSI [Suspect]
     Active Substance: SOLRIAMFETOL
     Dosage: 75 MG, QD IN THE MORNING FOR A COUPLE OF DAYS IN A ROW
     Dates: start: 20191215, end: 201912
  5. MODAFINIL. [Suspect]
     Active Substance: MODAFINIL
     Indication: SOMNOLENCE
     Dosage: DAILY EXCEPT FOR THE WEEKEND

REACTIONS (4)
  - Drug interaction [Recovered/Resolved]
  - Insomnia [Recovered/Resolved]
  - Anxiety [Recovered/Resolved]
  - Unevaluable event [Unknown]

NARRATIVE: CASE EVENT DATE: 20191215
